FAERS Safety Report 18513445 (Version 3)
Quarter: 2021Q2

REPORT INFORMATION
  Report Type: Other
  Country: CA (occurrence: CA)
  Receive Date: 20201118
  Receipt Date: 20210421
  Transmission Date: 20210717
  Serious: Yes (Other)
  Sender: FDA-Public Use
  Company Number: CA-CELLTRION INC.-2020CA031346

PATIENT

DRUGS (29)
  1. AMLODIPINE [Concomitant]
     Active Substance: AMLODIPINE BESYLATE
     Route: 065
  2. BENADRYL [Concomitant]
     Active Substance: DIPHENHYDRAMINE HYDROCHLORIDE
     Indication: PREMEDICATION
     Dosage: 50.0 MILLIGRAM
     Route: 048
  3. FERROUS FUMARATE [Concomitant]
     Active Substance: FERROUS FUMARATE
  4. FUROSEMIDE. [Concomitant]
     Active Substance: FUROSEMIDE
     Route: 065
  5. CALCITRIOL. [Concomitant]
     Active Substance: CALCITRIOL
     Route: 065
  6. DOMPERIDONE [Concomitant]
     Active Substance: DOMPERIDONE
  7. PANTOPRAZOLE [Concomitant]
     Active Substance: PANTOPRAZOLE
  8. SIMVASTATIN. [Concomitant]
     Active Substance: SIMVASTATIN
     Route: 065
  9. TRAJENTA [Concomitant]
     Active Substance: LINAGLIPTIN
  10. ASPIRIN [ACETYLSALICYLIC ACID] [Concomitant]
     Active Substance: ASPIRIN
     Route: 065
  11. INSULIN ASPART/INSULIN ASPART PROTAMINE (CRYSTALLINE) [Concomitant]
     Route: 065
  12. TERAZOSIN [Concomitant]
     Active Substance: TERAZOSIN HYDROCHLORIDE
  13. METFORMIN [Concomitant]
     Active Substance: METFORMIN HYDROCHLORIDE
     Route: 065
  14. RITUXIMAB (UNKNOWN) [Suspect]
     Active Substance: RITUXIMAB
     Indication: RHEUMATOID ARTHRITIS
     Dosage: 1000.0 MILLIGRAM
     Route: 042
  15. ACETYLSALICYLIC ACID [Concomitant]
     Active Substance: ASPIRIN
  16. INDAPAMIDE. [Concomitant]
     Active Substance: INDAPAMIDE
     Route: 065
  17. LISINOPRIL. [Concomitant]
     Active Substance: LISINOPRIL
     Route: 065
  18. PANTOPRAZOLE MAGNESIUM [Concomitant]
     Active Substance: PANTOPRAZOLE MAGNESIUM
     Route: 065
  19. CALCIUM [Concomitant]
     Active Substance: CALCIUM
  20. XALATAN [Concomitant]
     Active Substance: LATANOPROST
     Route: 065
  21. ENBREL [Concomitant]
     Active Substance: ETANERCEPT
     Route: 065
  22. LATANOPROST. [Concomitant]
     Active Substance: LATANOPROST
  23. PANCREATIN [Concomitant]
     Active Substance: PANCRELIPASE
  24. TYLENOL [Concomitant]
     Active Substance: ACETAMINOPHEN
     Indication: PREMEDICATION
     Dosage: 650.0 MILLIGRAM
     Route: 048
  25. LABETALOL [Concomitant]
     Active Substance: LABETALOL\LABETALOL HYDROCHLORIDE
  26. LOPERAMIDE [Concomitant]
     Active Substance: LOPERAMIDE
  27. MAGNESIUM [Concomitant]
     Active Substance: MAGNESIUM
  28. OLMETEC [Concomitant]
     Active Substance: OLMESARTAN MEDOXOMIL
     Route: 065
  29. SOLU?MEDROL [Concomitant]
     Active Substance: METHYLPREDNISOLONE SODIUM SUCCINATE
     Indication: PREMEDICATION
     Dosage: 100.0 MILLIGRAM
     Route: 042

REACTIONS (17)
  - Heart rate decreased [Not Recovered/Not Resolved]
  - Blood pressure fluctuation [Not Recovered/Not Resolved]
  - Blood pressure increased [Not Recovered/Not Resolved]
  - Bursa disorder [Not Recovered/Not Resolved]
  - Fistula [Not Recovered/Not Resolved]
  - Intentional product use issue [Not Recovered/Not Resolved]
  - Bone hypertrophy [Not Recovered/Not Resolved]
  - Joint swelling [Not Recovered/Not Resolved]
  - Renal procedural complication [Not Recovered/Not Resolved]
  - Blood pressure systolic increased [Not Recovered/Not Resolved]
  - Body temperature decreased [Not Recovered/Not Resolved]
  - Internal haemorrhage [Not Recovered/Not Resolved]
  - Oxygen saturation decreased [Not Recovered/Not Resolved]
  - Renal failure [Not Recovered/Not Resolved]
  - Steal syndrome [Not Recovered/Not Resolved]
  - Infusion related reaction [Not Recovered/Not Resolved]
  - Off label use [Not Recovered/Not Resolved]
